FAERS Safety Report 7260374 (Version 2)
Quarter: 2014Q1

REPORT INFORMATION
  Report Type: Spontaneous
  Country: US (occurrence: None)
  Receive Date: 20100119
  Receipt Date: 20140122
  Transmission Date: 20141002
  Serious: Yes (Hospitalization, Other)
  Sender: FDA-Public Use
  Company Number: 2010S1000196

PATIENT
  Age: 70 Year
  Sex: Female

DRUGS (9)
  1. PHOSPHO-SODA [Suspect]
     Indication: COLONOSCOPY
     Route: 048
     Dates: start: 20070822, end: 20070822
  2. PRILOSEC [Concomitant]
  3. CENTRUM SILVER [Concomitant]
  4. PAXIL (PAROXETINE HYDROCHLORIDE) [Concomitant]
  5. CRESTOR (ROSUVASTATIN CALCIUM) [Concomitant]
  6. ACTOS [Concomitant]
  7. ASPIRIN [Concomitant]
  8. ELAVIL (AMITRIPTYLINE HYDROCHLORIDE) [Concomitant]
  9. COREG (CARVEDILOL) [Concomitant]

REACTIONS (8)
  - Renal failure acute [None]
  - Tubulointerstitial nephritis [None]
  - Pneumonia [None]
  - Anaemia [None]
  - Normochromic normocytic anaemia [None]
  - Renal failure chronic [None]
  - Acute phosphate nephropathy [None]
  - Nephrogenic anaemia [None]
